FAERS Safety Report 8774815 (Version 1)
Quarter: 2012Q4

REPORT INFORMATION
  Report Type: 
  Country: US (occurrence: US)
  Receive Date: 20120910
  Receipt Date: 20120910
  Transmission Date: 20130627
  Serious: Yes (Death, Other)
  Sender: FDA-Public Use
  Company Number: US-ASTRAZENECA-2012SE69849

PATIENT
  Age: 90 Year
  Sex: Female

DRUGS (1)
  1. MERREM [Suspect]
     Route: 042

REACTIONS (6)
  - Burning sensation [Fatal]
  - Renal failure [Fatal]
  - Burns third degree [Unknown]
  - Eye movement disorder [Unknown]
  - Dry eye [Unknown]
  - Skin exfoliation [Unknown]
